FAERS Safety Report 7514786-0 (Version None)
Quarter: 2011Q2

REPORT INFORMATION
  Report Type: 
  Country: None (occurrence: None)
  Receive Date: 20110526
  Receipt Date: 20110526
  Transmission Date: 20111010
  Serious: No
  Sender: FDA-Public Use
  Company Number: None

PATIENT
  Age: 51 Year
  Sex: Female

DRUGS (3)
  1. OTHER MEDS FILLED @ OTHER PHARMACY [Concomitant]
  2. SUMATRIPTAN SUCCINATE [Concomitant]
  3. PROVIGIL [Suspect]
     Indication: MULTIPLE SCLEROSIS
     Dosage: 200MG PO QD
     Route: 048
     Dates: start: 20110506

REACTIONS (1)
  - HEADACHE [None]
